FAERS Safety Report 16925650 (Version 4)
Quarter: 2020Q1

REPORT INFORMATION
  Report Type: Report from Study
  Country: US (occurrence: US)
  Receive Date: 20191016
  Receipt Date: 20200122
  Transmission Date: 20200409
  Serious: Yes (Death, Hospitalization, Other)
  Sender: FDA-Public Use
  Company Number: US-ACTELION-A-NJ2019-196890

PATIENT
  Age: 56 Year
  Sex: Female

DRUGS (9)
  1. OPSUMIT [Suspect]
     Active Substance: MACITENTAN
     Indication: PULMONARY ARTERIAL HYPERTENSION
     Dosage: 10 MG, QD
     Route: 048
     Dates: start: 20190413, end: 20191223
  2. DIGOXIN. [Concomitant]
     Active Substance: DIGOXIN
     Dosage: 125 MCG, TID
  3. FUROSEMIDE. [Concomitant]
     Active Substance: FUROSEMIDE
     Dosage: 40 MG, QD
  4. DEXAMETHASONE. [Concomitant]
     Active Substance: DEXAMETHASONE
     Dosage: 40 MG
  5. BORTEZOMIB. [Concomitant]
     Active Substance: BORTEZOMIB
  6. ACYCLOVIR. [Concomitant]
     Active Substance: ACYCLOVIR
     Dosage: 400 MG, BID
  7. SILDENAFIL. [Concomitant]
     Active Substance: SILDENAFIL
     Dosage: 40 MG, TID
     Dates: start: 201904
  8. POTASSIUM CHLORIDE. [Concomitant]
     Active Substance: POTASSIUM CHLORIDE
     Dosage: 40 MEQ, QD
  9. REVLIMID [Concomitant]
     Active Substance: LENALIDOMIDE
     Dosage: 25 MG, QD
     Dates: start: 201912

REACTIONS (8)
  - Pneumonia [Unknown]
  - Plasma cell myeloma [Unknown]
  - Right ventricular failure [Unknown]
  - Cardiogenic shock [Fatal]
  - Dyspnoea [Unknown]
  - Sepsis [Unknown]
  - Nodal arrhythmia [Unknown]
  - Somnolence [Unknown]

NARRATIVE: CASE EVENT DATE: 20190910
